FAERS Safety Report 6827371-0 (Version None)
Quarter: 2010Q3

REPORT INFORMATION
  Report Type: 
  Country: None (occurrence: None)
  Receive Date: 20100709
  Receipt Date: 20100707
  Transmission Date: 20110219
  Serious: Yes (Other)
  Sender: FDA-Public Use
  Company Number: A0866240A

PATIENT
  Age: 35 Year
  Sex: Female

DRUGS (4)
  1. ALLI [Suspect]
     Indication: PRODUCT USED FOR UNKNOWN INDICATION
     Route: 048
  2. ANTIDEPRESSANT [Concomitant]
     Indication: DEPRESSION
  3. UNKNOWN DRUG FOR ANXIETY [Concomitant]
     Indication: ANXIETY
  4. DIABETES MEDICATION [Concomitant]

REACTIONS (2)
  - ASTHMA [None]
  - DYSPNOEA [None]
